FAERS Safety Report 20822028 (Version 4)
Quarter: 2022Q4

REPORT INFORMATION
  Report Type: Spontaneous
  Country: US (occurrence: US)
  Receive Date: 20220512
  Receipt Date: 20221026
  Transmission Date: 20230113
  Serious: Yes (Other)
  Sender: FDA-Public Use
  Company Number: US-PFIZER INC-202200551154

PATIENT
  Age: 72 Year
  Sex: Female

DRUGS (2)
  1. XELJANZ [Suspect]
     Active Substance: TOFACITINIB CITRATE
     Dosage: 5 MG (8D/30 DAY, REFILLS 11)
     Route: 048
  2. XELJANZ [Suspect]
     Active Substance: TOFACITINIB CITRATE
     Dosage: 5 MG, 1X/DAY

REACTIONS (6)
  - Pneumonia fungal [Unknown]
  - Dyspnoea [Unknown]
  - Memory impairment [Unknown]
  - Off label use [Unknown]
  - Intentional product misuse [Unknown]
  - Peripheral swelling [Unknown]
